FAERS Safety Report 15646916 (Version 2)
Quarter: 2018Q4

REPORT INFORMATION
  Report Type: Spontaneous
  Country: US (occurrence: US)
  Receive Date: 20181122
  Receipt Date: 20181124
  Transmission Date: 20190205
  Serious: Yes (Other)
  Sender: FDA-Public Use
  Company Number: US-JNJFOC-20181110965

PATIENT
  Age: 58 Year
  Sex: Female
  Weight: 91.8 kg

DRUGS (1)
  1. INVOKANA [Suspect]
     Active Substance: CANAGLIFLOZIN
     Indication: TYPE 2 DIABETES MELLITUS
     Route: 048
     Dates: start: 20160225, end: 20160707

REACTIONS (3)
  - Diabetes mellitus inadequate control [Unknown]
  - Acute kidney injury [Unknown]
  - Vaginal infection [Unknown]

NARRATIVE: CASE EVENT DATE: 2016
